FAERS Safety Report 5730111-X (Version None)
Quarter: 2008Q2

REPORT INFORMATION
  Report Type: 
  Country: None (occurrence: None)
  Receive Date: 20080507
  Receipt Date: 20080424
  Transmission Date: 20081010
  Serious: Yes (Hospitalization)
  Sender: FDA-Public Use
  Company Number: US-ELI_LILLY_AND_COMPANY-US200804006797

PATIENT
  Age: 3 Year
  Sex: Male
  Weight: 15.3 kg

DRUGS (1)
  1. PEMETREXED [Suspect]
     Indication: RECURRENT CANCER
     Dosage: 1150 MG, OTHER
     Route: 042
     Dates: start: 20080416

REACTIONS (1)
  - ANAL ULCER [None]
